FAERS Safety Report 6386971-5 (Version None)
Quarter: 2009Q4

REPORT INFORMATION
  Report Type: 
  Country: None (occurrence: None)
  Receive Date: 20091002
  Receipt Date: 20090923
  Transmission Date: 20100525
  Serious: Yes (Other)
  Sender: FDA-Public Use
  Company Number: US-WATSON-2009-07940

PATIENT
  Age: 51 Year
  Sex: Female

DRUGS (1)
  1. FERRLECIT [Suspect]
     Indication: IRON DEFICIENCY
     Dosage: 5 ML (62.5MG), 3/WEEK
     Route: 042
     Dates: start: 20040101, end: 20060101

REACTIONS (3)
  - ARTHRALGIA [None]
  - ARTHRITIS [None]
  - JOINT LOCK [None]
